FAERS Safety Report 9565543 (Version 2)
Quarter: 2013Q4

REPORT INFORMATION
  Report Type: Spontaneous
  Country: US (occurrence: US)
  Receive Date: 20130930
  Receipt Date: 20131021
  Transmission Date: 20140711
  Serious: No
  Sender: FDA-Public Use
  Company Number: US-PFIZER INC-2013275791

PATIENT
  Age: 24 Year
  Sex: Male

DRUGS (1)
  1. VANCOMYCIN HCL [Suspect]
     Indication: LUNG INFECTION
     Dosage: 1250 MG, 3X/DAY
     Route: 042

REACTIONS (2)
  - Drug hypersensitivity [Unknown]
  - Red man syndrome [Recovered/Resolved]
